FAERS Safety Report 21023235 (Version 1)
Quarter: 2022Q2

REPORT INFORMATION
  Report Type: Spontaneous
  Country: US (occurrence: None)
  Receive Date: 20220629
  Receipt Date: 20220629
  Transmission Date: 20220721
  Serious: Yes (Other)
  Sender: FDA-Public Use
  Company Number: 2022A233737

PATIENT

DRUGS (1)
  1. EVUSHELD [Suspect]
     Active Substance: CILGAVIMAB\TIXAGEVIMAB
     Route: 030

REACTIONS (6)
  - Haemorrhage [Unknown]
  - Haematocrit decreased [Unknown]
  - Cognitive disorder [Unknown]
  - Dysgraphia [Unknown]
  - Faeces discoloured [Unknown]
  - Fatigue [Unknown]
